FAERS Safety Report 13724585 (Version 2)
Quarter: 2017Q3

REPORT INFORMATION
  Report Type: Spontaneous
  Country: US (occurrence: US)
  Receive Date: 20170706
  Receipt Date: 20170824
  Transmission Date: 20171127
  Serious: No
  Sender: FDA-Public Use
  Company Number: US-BAYER-2017-127875

PATIENT
  Sex: Female
  Weight: 57 kg

DRUGS (7)
  1. MIRALAX [Suspect]
     Active Substance: POLYETHYLENE GLYCOL 3350
     Indication: GASTROINTESTINAL DISORDER
     Dosage: 1 DF, TIW
     Route: 048
  2. MIRALAX [Suspect]
     Active Substance: POLYETHYLENE GLYCOL 3350
     Indication: CONSTIPATION
     Dosage: UNK
     Route: 048
     Dates: start: 20170703, end: 20170703
  3. MULTIVITAMIN [Concomitant]
     Active Substance: VITAMINS
     Dosage: UNK
  4. PROBIOTICA [Concomitant]
     Active Substance: PROBIOTICS NOS
     Dosage: UNK
  5. GAMMA-LINOLENIC ACID [Concomitant]
     Dosage: UNK
  6. VITAMIN D3 [Concomitant]
     Active Substance: CHOLECALCIFEROL
     Dosage: UNK
  7. VITAMIN C [Concomitant]
     Active Substance: ASCORBIC ACID

REACTIONS (7)
  - Therapeutic response delayed [Unknown]
  - Inappropriate prescribing [Unknown]
  - Product use in unapproved indication [Unknown]
  - Intercepted drug prescribing error [Unknown]
  - Product use in unapproved indication [Unknown]
  - Off label use [Unknown]
  - Inappropriate prescribing [Unknown]

NARRATIVE: CASE EVENT DATE: 20170703
